FAERS Safety Report 18903443 (Version 1)
Quarter: 2021Q1

REPORT INFORMATION
  Report Type: Spontaneous
  Country: US (occurrence: US)
  Receive Date: 20210216
  Receipt Date: 20210216
  Transmission Date: 20210420
  Serious: No
  Sender: FDA-Public Use
  Company Number: US-JNJFOC-20210212260

PATIENT

DRUGS (2)
  1. REACTINE RAPID DISSOLVE [Suspect]
     Active Substance: CETIRIZINE HYDROCHLORIDE
     Indication: SLEEP DISORDER THERAPY
  2. REACTINE RAPID DISSOLVE [Suspect]
     Active Substance: CETIRIZINE HYDROCHLORIDE
     Indication: SKIN REACTION
     Route: 065

REACTIONS (5)
  - Somnolence [Unknown]
  - Product use in unapproved indication [Unknown]
  - Dysgeusia [Unknown]
  - Therapeutic response unexpected [Unknown]
  - Fatigue [Unknown]
